FAERS Safety Report 25425832 (Version 1)
Quarter: 2025Q2

REPORT INFORMATION
  Report Type: Report from Study
  Country: US (occurrence: US)
  Receive Date: 20250611
  Receipt Date: 20250611
  Transmission Date: 20250717
  Serious: Yes (Other)
  Sender: MALLINCKRODT
  Company Number: US-MALLINCKRODT-MNK202501817

PATIENT
  Sex: Female

DRUGS (3)
  1. CORTICOTROPIN [Suspect]
     Active Substance: CORTICOTROPIN
     Indication: Noninfective chorioretinitis
  2. INFLECTRA [Concomitant]
     Active Substance: INFLIXIMAB-DYYB
  3. INFLECTRA [Concomitant]
     Active Substance: INFLIXIMAB-DYYB

REACTIONS (5)
  - Back disorder [Recovering/Resolving]
  - Arthropathy [Recovering/Resolving]
  - Fall [Unknown]
  - Irritability [Unknown]
  - Fatigue [Not Recovered/Not Resolved]
